FAERS Safety Report 5717666-6 (Version None)
Quarter: 2008Q2

REPORT INFORMATION
  Report Type: 
  Country: None (occurrence: None)
  Receive Date: 20080425
  Receipt Date: 20080421
  Transmission Date: 20081010
  Serious: Yes (Hospitalization)
  Sender: FDA-Public Use
  Company Number: DE-BAYER-200815693GPV

PATIENT
  Age: 54 Year
  Sex: Male
  Weight: 65 kg

DRUGS (5)
  1. SORAFENIB [Suspect]
     Indication: NON-SMALL CELL LUNG CANCER
     Dosage: TOTAL DAILY DOSE: 800 MG
     Route: 048
     Dates: start: 20080124
  2. CISPLATIN [Suspect]
     Indication: NON-SMALL CELL LUNG CANCER
     Dosage: UNIT DOSE: 75 MG/M2
     Route: 042
     Dates: start: 20080124
  3. GEMCITABINE [Suspect]
     Indication: NON-SMALL CELL LUNG CANCER
     Dosage: UNIT DOSE: 1250 MG/M2
     Route: 042
     Dates: start: 20080124
  4. ZOPICLON [Concomitant]
     Indication: SLEEP DISORDER
     Route: 065
     Dates: start: 20080121
  5. DICLOFENAC SODIUM [Concomitant]
     Indication: MUSCULOSKELETAL PAIN
     Route: 065
     Dates: start: 20070101

REACTIONS (1)
  - ARTERIAL THROMBOSIS [None]
